FAERS Safety Report 6733092-5 (Version None)
Quarter: 2010Q2

REPORT INFORMATION
  Report Type: 
  Country: None (occurrence: None)
  Receive Date: 20100518
  Receipt Date: 20100506
  Transmission Date: 20101027
  Serious: Yes (Hospitalization)
  Sender: FDA-Public Use
  Company Number: JP-2010-1020

PATIENT

DRUGS (2)
  1. NAVELBINE [Suspect]
     Dosage: 50 MG IV
     Route: 042
     Dates: start: 20100316, end: 20100323
  2. RANDA [Concomitant]

REACTIONS (1)
  - ORTHOSTATIC HYPOTENSION [None]
